FAERS Safety Report 7102907-3 (Version None)
Quarter: 2010Q4

REPORT INFORMATION
  Report Type: 
  Country: None (occurrence: None)
  Receive Date: 20101115
  Receipt Date: 20101108
  Transmission Date: 20110411
  Serious: Yes (Other)
  Sender: FDA-Public Use
  Company Number: BR-PFIZER INC-2010142568

PATIENT
  Age: 56 Year
  Sex: Male

DRUGS (7)
  1. CITALOR [Suspect]
     Dosage: UNK
     Route: 048
     Dates: start: 19980101
  2. LIPITOR [Suspect]
     Indication: CARDIAC DISORDER
     Dosage: UNK
     Route: 048
     Dates: start: 20000101
  3. LIPITOR [Suspect]
     Dosage: 40 MG, 1X/DAY
     Route: 048
     Dates: start: 20081108
  4. METOPROLOL SUCCINATE [Concomitant]
     Dosage: UNK
     Dates: start: 20080101
  5. GALVUS [Concomitant]
     Dosage: UNK
     Dates: start: 20080101
  6. RIVOTRIL [Concomitant]
     Dosage: UNK
     Dates: start: 20000101
  7. ASSERT [Concomitant]
     Dosage: UNK

REACTIONS (2)
  - INFARCTION [None]
  - STENT PLACEMENT [None]
